FAERS Safety Report 9381217 (Version 4)
Quarter: 2014Q2

REPORT INFORMATION
  Report Type: Report from Study
  Country: CA (occurrence: CA)
  Receive Date: 20130703
  Receipt Date: 20140414
  Transmission Date: 20141212
  Serious: Yes (Other)
  Sender: FDA-Public Use
  Company Number: CA-ROCHE-1241840

PATIENT
  Age: 53 Year
  Sex: Female
  Weight: 102.5 kg

DRUGS (17)
  1. RITUXAN [Suspect]
     Indication: RHEUMATOID ARTHRITIS
     Route: 042
     Dates: start: 20101125
  2. RITUXAN [Suspect]
     Route: 065
     Dates: start: 20121220
  3. DIPHENHYDRAMINE HCL [Concomitant]
     Indication: PREMEDICATION
     Route: 048
     Dates: start: 20101125
  4. ACETAMINOPHEN [Concomitant]
     Indication: PREMEDICATION
     Route: 048
     Dates: start: 20101125
  5. ARAVA [Concomitant]
  6. SPIRIVA [Concomitant]
  7. VENTOLIN [Concomitant]
  8. ROBAXISAL-C [Concomitant]
  9. PERCOCET [Concomitant]
  10. FERROUS GLUCONATE [Concomitant]
  11. COVERSYL [Concomitant]
     Route: 065
  12. ACTONEL [Concomitant]
     Route: 065
  13. ENDOCET [Concomitant]
  14. EFFEXOR [Concomitant]
     Route: 065
  15. METHYLPREDNISOLONE [Concomitant]
     Indication: PREMEDICATION
     Route: 042
     Dates: start: 20101125
  16. PREDNISONE [Concomitant]
  17. AMITRIPTYLINE [Concomitant]

REACTIONS (7)
  - Chronic obstructive pulmonary disease [Unknown]
  - Lung disorder [Not Recovered/Not Resolved]
  - Mass [Not Recovered/Not Resolved]
  - Procedural site reaction [Not Recovered/Not Resolved]
  - Post procedural infection [Not Recovered/Not Resolved]
  - Incision site erythema [Not Recovered/Not Resolved]
  - Hypotension [Unknown]
